FAERS Safety Report 4947300-4 (Version None)
Quarter: 2006Q1

REPORT INFORMATION
  Report Type: 
  Country: None (occurrence: None)
  Receive Date: 20060313
  Receipt Date: 20060228
  Transmission Date: 20060701
  Serious: Yes (Other)
  Sender: FDA-Public Use
  Company Number: HQWYE935616AUG05

PATIENT
  Age: 60 Year
  Sex: Female
  Weight: 74 kg

DRUGS (3)
  1. PREMPRO [Suspect]
     Indication: HORMONE REPLACEMENT THERAPY
  2. PREMARIN [Suspect]
  3. PROVERA [Suspect]

REACTIONS (3)
  - BREAST CANCER METASTATIC [None]
  - BREAST CYST [None]
  - METASTASES TO LYMPH NODES [None]
